FAERS Safety Report 8771699 (Version 1)
Quarter: 2012Q4

REPORT INFORMATION
  Report Type: 
  Country: US (occurrence: US)
  Receive Date: 20120906
  Receipt Date: 20120906
  Transmission Date: 20130627
  Serious: Yes (Other)
  Sender: FDA-Public Use
  Company Number: US-ASTRAZENECA-2012SE65113

PATIENT
  Age: 252 Month
  Sex: Female
  Weight: 66.2 kg

DRUGS (7)
  1. SEROQUEL [Suspect]
     Indication: BIPOLAR II DISORDER
     Dosage: 250mg po daily at 5.30pm, and 50mg po daily at 8.30pm or 9.00pm
     Route: 048
     Dates: start: 200909, end: 201006
  2. SEROQUEL [Suspect]
     Indication: SCHIZOPHRENIA
     Dosage: 250mg po daily at 5.30pm, and 50mg po daily at 8.30pm or 9.00pm
     Route: 048
     Dates: start: 200909, end: 201006
  3. SEROQUEL [Suspect]
     Indication: BIPOLAR II DISORDER
     Route: 048
     Dates: start: 201102
  4. SEROQUEL [Suspect]
     Indication: SCHIZOPHRENIA
     Route: 048
     Dates: start: 201102
  5. REGLAN [Concomitant]
     Indication: BIPOLAR II DISORDER
     Route: 048
  6. REGLAN [Concomitant]
     Indication: SCHIZOPHRENIA
     Route: 048
  7. PRENATAL VITAMINS [Concomitant]
     Indication: PREGNANCY
     Route: 048

REACTIONS (8)
  - Exposure during pregnancy [Unknown]
  - Self injurious behaviour [Unknown]
  - Anger [Unknown]
  - Headache [Unknown]
  - Migraine [Unknown]
  - Aggression [Unknown]
  - Memory impairment [Unknown]
  - Drug dose omission [Unknown]
